FAERS Safety Report 6635701-8 (Version None)
Quarter: 2010Q1

REPORT INFORMATION
  Report Type: 
  Country: None (occurrence: None)
  Receive Date: 20100312
  Receipt Date: 20100312
  Transmission Date: 20100710
  Serious: Yes (Other)
  Sender: FDA-Public Use
  Company Number: None

PATIENT
  Sex: Female
  Weight: 150 kg

DRUGS (1)
  1. SULFAMETHOXAZOLE AND TRIMETHOPRIM [Suspect]
     Indication: ABSCESS
     Dosage: SMZ/TMP DS 800-160 (BACTRIM BID ORAL
     Route: 048
     Dates: start: 20100304, end: 20100306

REACTIONS (5)
  - ANXIETY [None]
  - DECREASED APPETITE [None]
  - FATIGUE [None]
  - MUSCLE SPASMS [None]
  - PALPITATIONS [None]
